FAERS Safety Report 14098088 (Version 2)
Quarter: 2018Q1

REPORT INFORMATION
  Report Type: Report from Study
  Country: JP (occurrence: JP)
  Receive Date: 20171017
  Receipt Date: 20180130
  Transmission Date: 20180508
  Serious: Yes (Death)
  Sender: FDA-Public Use
  Company Number: JP-UCBSA-2017038408

PATIENT
  Age: 84 Year
  Sex: Male

DRUGS (2)
  1. LEVETIRACETAM. [Suspect]
     Active Substance: LEVETIRACETAM
     Dosage: 500 MG, 2X/DAY (BID)
     Route: 041
     Dates: start: 201702, end: 20170217
  2. LEVETIRACETAM. [Suspect]
     Active Substance: LEVETIRACETAM
     Indication: PARTIAL SEIZURES WITH SECONDARY GENERALISATION
     Dosage: 500 MG ONLY ONCE A DAY AT 16:15
     Route: 041
     Dates: start: 20170214, end: 201702

REACTIONS (3)
  - Brain contusion [Fatal]
  - Off label use [Unknown]
  - Brain herniation [Fatal]

NARRATIVE: CASE EVENT DATE: 201702
